FAERS Safety Report 5700193-X (Version None)
Quarter: 2008Q2

REPORT INFORMATION
  Report Type: 
  Country: None (occurrence: None)
  Receive Date: 20080407
  Receipt Date: 20080321
  Transmission Date: 20081010
  Serious: Yes (Hospitalization, Disabling)
  Sender: FDA-Public Use
  Company Number: 2008US000781

PATIENT
  Age: 41 Year
  Sex: Female
  Weight: 93.2 kg

DRUGS (6)
  1. AMEVIVE [Suspect]
     Indication: PSORIASIS
     Dosage: 15 MG, WEEKLY, INTRAMUSCULAR
     Route: 030
     Dates: start: 20050901
  2. PROTOPIC [Concomitant]
  3. TRIAMCINOLONE [Concomitant]
  4. ACLOVATE        (ALCLOMETASONE DIPROPIONATE) [Concomitant]
  5. OLUX [Concomitant]
  6. CLOBEX [Concomitant]

REACTIONS (7)
  - ADENOMYOSIS [None]
  - CYSTOCELE [None]
  - PELVIC PAIN [None]
  - PELVIC PERITONEAL ADHESIONS [None]
  - RECTOCELE [None]
  - STRESS URINARY INCONTINENCE [None]
  - URETHRAL DISORDER [None]
